FAERS Safety Report 20310319 (Version 1)
Quarter: 2022Q1

REPORT INFORMATION
  Report Type: Spontaneous
  Country: FR (occurrence: FR)
  Receive Date: 20220107
  Receipt Date: 20220107
  Transmission Date: 20220423
  Serious: Yes (Hospitalization)
  Sender: FDA-Public Use
  Company Number: None

PATIENT
  Age: 22 Year
  Sex: Female

DRUGS (3)
  1. LINEZOLID [Suspect]
     Active Substance: LINEZOLID
     Indication: Staphylococcal infection
     Dosage: 1200 MILLIGRAM, QD, 600MG 2X/J
     Route: 048
     Dates: start: 20211207, end: 20211217
  2. TAZOBACTAM [Suspect]
     Active Substance: TAZOBACTAM
     Indication: Staphylococcal infection
     Dosage: 12 GRAM, QD, 4G 3X/J
     Route: 042
     Dates: start: 20211207, end: 20211217
  3. PIPERACILLIN SODIUM [Suspect]
     Active Substance: PIPERACILLIN SODIUM
     Indication: Staphylococcal infection
     Dosage: 12 GRAM, QD, 4G 3X/J
     Route: 042
     Dates: start: 20211207, end: 20211217

REACTIONS (1)
  - Haemophagocytic lymphohistiocytosis [Recovering/Resolving]

NARRATIVE: CASE EVENT DATE: 20211213
